FAERS Safety Report 6707845-3 (Version None)
Quarter: 2010Q2

REPORT INFORMATION
  Report Type: 
  Country: None (occurrence: None)
  Receive Date: 20100503
  Receipt Date: 20090303
  Transmission Date: 20101027
  Serious: No
  Sender: FDA-Public Use
  Company Number: US-ASTRAZENECA-2009UW05780

PATIENT
  Age: 52 Year
  Sex: Male
  Weight: 79.4 kg

DRUGS (3)
  1. NEXIUM [Suspect]
     Indication: OESOPHAGITIS
     Route: 048
     Dates: start: 20090113
  2. AUGMENTIN '125' [Concomitant]
     Indication: SINUSITIS
  3. VITAMINS [Concomitant]

REACTIONS (4)
  - ABDOMINAL PAIN UPPER [None]
  - ERUCTATION [None]
  - NASAL CONGESTION [None]
  - SINUSITIS [None]
